FAERS Safety Report 16128382 (Version 1)
Quarter: 2019Q1

REPORT INFORMATION
  Report Type: Spontaneous
  Country: US (occurrence: US)
  Receive Date: 20190328
  Receipt Date: 20190328
  Transmission Date: 20190418
  Serious: No
  Sender: FDA-Public Use
  Company Number: US-TESARO-TS50-00408-2018USA

PATIENT
  Sex: Male
  Weight: 70.37 kg

DRUGS (2)
  1. VARUBI [Suspect]
     Active Substance: ROLAPITANT
     Indication: NAUSEA
     Dosage: TWO 90 MG TABLETS, 1- 2 HOURS BEFORE CHEMO
     Route: 048
     Dates: start: 201804
  2. VARUBI [Interacting]
     Active Substance: ROLAPITANT
     Indication: VOMITING
     Dosage: TWO 90 MG TABLETS, 1- 2 HOURS BEFORE CHEMO

REACTIONS (2)
  - No adverse event [Unknown]
  - Product dose omission [Unknown]

NARRATIVE: CASE EVENT DATE: 2018
